FAERS Safety Report 17930779 (Version 4)
Quarter: 2023Q4

REPORT INFORMATION
  Report Type: Spontaneous
  Country: US (occurrence: US)
  Receive Date: 20200623
  Receipt Date: 20231030
  Transmission Date: 20240109
  Serious: No
  Sender: FDA-Public Use
  Company Number: US-VERTEX PHARMACEUTICALS-2020-012119

PATIENT
  Sex: Female
  Weight: 65 kg

DRUGS (9)
  1. KALYDECO [Suspect]
     Active Substance: IVACAFTOR
     Indication: Cystic fibrosis
     Dosage: 150 MG, BID (REGULAR DOSE)
     Route: 048
     Dates: start: 20150512, end: 20150828
  2. KALYDECO [Suspect]
     Active Substance: IVACAFTOR
     Dosage: 150 MG, BID
     Route: 048
     Dates: start: 20150921, end: 20220329
  3. KALYDECO [Suspect]
     Active Substance: IVACAFTOR
     Dosage: 150 MG
     Route: 048
     Dates: start: 20230927
  4. PULMOZYME [Concomitant]
     Active Substance: DORNASE ALFA
  5. ZYRTEC [Concomitant]
     Active Substance: CETIRIZINE HYDROCHLORIDE
     Dosage: CAPSULE
  6. DEXPANTHENOL\NIACINAMIDE\PYRIDOXINE HYDROCHLORIDE\RIBOFLAVIN 5^-PHOSPH [Concomitant]
     Active Substance: DEXPANTHENOL\NIACINAMIDE\PYRIDOXINE HYDROCHLORIDE\RIBOFLAVIN 5^-PHOSPHATE SODIUM\THIAMINE HYDROCHLOR
     Dosage: TABLET
  7. FISH OIL [Concomitant]
     Active Substance: FISH OIL
     Dosage: 100-150 MG CAPSULE
  8. CALCIUM [Concomitant]
     Active Substance: CALCIUM
     Dosage: 500 (1250) TABLET CHEW
  9. SODIUM CHLORIDE [Concomitant]
     Active Substance: SODIUM CHLORIDE

REACTIONS (4)
  - Illness [Not Recovered/Not Resolved]
  - Pyrexia [Not Recovered/Not Resolved]
  - Infective pulmonary exacerbation of cystic fibrosis [Unknown]
  - Infection [Unknown]

NARRATIVE: CASE EVENT DATE: 20200101
